FAERS Safety Report 5491698-8 (Version None)
Quarter: 2007Q4

REPORT INFORMATION
  Report Type: 
  Country: None (occurrence: None)
  Receive Date: 20071022
  Receipt Date: 20071011
  Transmission Date: 20080405
  Serious: Yes (Other)
  Sender: FDA-Public Use
  Company Number: CZ-JNJFOC-20071003502

PATIENT
  Age: 29 Year
  Sex: Female
  Weight: 40 kg

DRUGS (3)
  1. REMICADE [Suspect]
     Indication: CROHN'S DISEASE
     Route: 042
  2. IMURAN [Concomitant]
     Indication: CROHN'S DISEASE
     Route: 048
  3. PREDNISON [Concomitant]
     Indication: CROHN'S DISEASE
     Dosage: NOT REGULARLY
     Route: 048

REACTIONS (1)
  - UTERINE CANCER [None]
